FAERS Safety Report 8821626 (Version 2)
Quarter: 2013Q2

REPORT INFORMATION
  Report Type: Report from Study
  Country: JP (occurrence: JP)
  Receive Date: 20121002
  Receipt Date: 20130614
  Transmission Date: 20140414
  Serious: Yes (Hospitalization)
  Sender: FDA-Public Use
  Company Number: JP-009507513-1209JPN006314

PATIENT
  Age: 62 Year
  Sex: Male
  Weight: 85 kg

DRUGS (7)
  1. PEGINTRON [Suspect]
     Indication: CHRONIC HEPATITIS C
     Dosage: 1.5 MICROGRAM PER KILOGRAM, QW
     Route: 058
     Dates: start: 20120705, end: 20120705
  2. PEGINTRON [Suspect]
     Dosage: 60 MICROGRAM, QW
     Route: 058
     Dates: start: 20120712, end: 20120712
  3. PEGINTRON [Suspect]
     Dosage: 100 MICROGRAM, QW
     Route: 058
     Dates: start: 20120719, end: 20120801
  4. PEGINTRON [Suspect]
     Dosage: 60 MICROGRAM PER KILOGRAM, QW
     Route: 058
     Dates: start: 20120808, end: 20120808
  5. REBETOL [Suspect]
     Indication: CHRONIC HEPATITIS C
     Dosage: 1000 MILLIGRAMS PER DAY
     Route: 048
     Dates: start: 20120705, end: 20120719
  6. REBETOL [Suspect]
     Dosage: 800 MG, UNK
     Route: 048
     Dates: start: 20120720
  7. TELAVIC [Suspect]
     Indication: CHRONIC HEPATITIS C
     Dosage: 2250 MILLIGRAMS PER DAY
     Route: 048
     Dates: start: 20120705, end: 20120816

REACTIONS (1)
  - Decreased appetite [Recovered/Resolved]
